FAERS Safety Report 6147984-1 (Version None)
Quarter: 2009Q2

REPORT INFORMATION
  Report Type: 
  Country: None (occurrence: None)
  Receive Date: 20090408
  Receipt Date: 20090326
  Transmission Date: 20091009
  Serious: Yes (Hospitalization, Other)
  Sender: FDA-Public Use
  Company Number: CN-ROCHE-621713

PATIENT
  Age: 25 Year
  Sex: Female

DRUGS (3)
  1. PEGASYS [Suspect]
     Indication: HEPATITIS B
     Route: 058
     Dates: start: 20060601, end: 20070301
  2. PEGASYS [Suspect]
     Route: 058
     Dates: start: 20070901, end: 20080101
  3. PEGASYS [Suspect]
     Route: 058
     Dates: start: 20080201, end: 20090201

REACTIONS (5)
  - HEPATIC FUNCTION ABNORMAL [None]
  - MYRINGITIS BULLOUS [None]
  - PLATELET COUNT DECREASED [None]
  - SYSTEMIC LUPUS ERYTHEMATOSUS [None]
  - WHITE BLOOD CELL COUNT DECREASED [None]
